FAERS Safety Report 15049779 (Version 2)
Quarter: 2019Q1

REPORT INFORMATION
  Report Type: Spontaneous
  Country: NL (occurrence: NL)
  Receive Date: 20180622
  Receipt Date: 20190221
  Transmission Date: 20190417
  Serious: Yes (Other)
  Sender: FDA-Public Use
  Company Number: NL-LUPIN PHARMACEUTICALS INC.-2018-04523

PATIENT
  Age: 33 Year
  Sex: Female

DRUGS (1)
  1. LEVONORGESTREL. [Suspect]
     Active Substance: LEVONORGESTREL
     Indication: CONTRACEPTION
     Dosage: UNK
     Route: 015

REACTIONS (4)
  - Pregnancy on contraceptive [Unknown]
  - Device deployment issue [Unknown]
  - Exposure during pregnancy [Unknown]
  - Uterine perforation [Unknown]
